FAERS Safety Report 4799758-1 (Version None)
Quarter: 2005Q4

REPORT INFORMATION
  Report Type: 
  Country: None (occurrence: None)
  Receive Date: 20051012
  Receipt Date: 20051012
  Transmission Date: 20060501
  Serious: Yes (Hospitalization)
  Sender: FDA-Public Use
  Company Number: None

PATIENT
  Sex: Male
  Weight: 108.8633 kg

DRUGS (9)
  1. KEFLEX [Suspect]
     Dosage: PO (TOOK 1ST DOSE 5/10/05)
     Route: 048
     Dates: start: 20050510
  2. TOPROL-XL [Concomitant]
  3. PLAVIX [Concomitant]
  4. ASPIRIN [Concomitant]
  5. ZOCOR [Concomitant]
  6. NTG SL [Concomitant]
  7. VICODIN [Concomitant]
  8. ZETIA [Concomitant]
  9. DURAGESIC-100 [Concomitant]

REACTIONS (2)
  - DYSPNOEA [None]
  - RASH [None]
